FAERS Safety Report 15991629 (Version 1)
Quarter: 2019Q1

REPORT INFORMATION
  Report Type: Spontaneous
  Country: DE (occurrence: DE)
  Receive Date: 20190221
  Receipt Date: 20190221
  Transmission Date: 20190418
  Serious: Yes (Hospitalization, Other)
  Sender: FDA-Public Use
  Company Number: PHHY2019DE040067

PATIENT
  Age: 65 Year
  Sex: Male

DRUGS (2)
  1. OLANZAPINE. [Suspect]
     Active Substance: OLANZAPINE
     Indication: PRODUCT USED FOR UNKNOWN INDICATION
     Dosage: 20 MG, QD
     Route: 065
  2. OLANZAPINE. [Interacting]
     Active Substance: OLANZAPINE
     Dosage: 40 MG, QD
     Route: 065

REACTIONS (11)
  - Drug interaction [Unknown]
  - Road traffic accident [Unknown]
  - Delirium [Unknown]
  - Schizophrenia [Unknown]
  - Cough [Unknown]
  - Antipsychotic drug level increased [Recovering/Resolving]
  - Suicidal ideation [Recovered/Resolved]
  - Respiratory tract infection [Unknown]
  - Upper limb fracture [Unknown]
  - Fall [Unknown]
  - Overdose [Recovered/Resolved]
